FAERS Safety Report 24323138 (Version 1)
Quarter: 2024Q3

REPORT INFORMATION
  Report Type: Spontaneous
  Country: US (occurrence: None)
  Receive Date: 20240913
  Receipt Date: 20240913
  Transmission Date: 20241017
  Serious: Yes (Hospitalization, Other)
  Sender: Public
  Company Number: None

PATIENT
  Age: 9 Year
  Sex: Male
  Weight: 54 kg

DRUGS (5)
  1. DEPAKOTE [Suspect]
     Active Substance: DIVALPROEX SODIUM
     Indication: Partial seizures
     Dates: start: 20240501, end: 20240903
  2. RESPERDONE [Concomitant]
  3. ZOLOFT [Concomitant]
     Active Substance: SERTRALINE HYDROCHLORIDE
  4. GUAFAZINE [Concomitant]
  5. TILIPTAL [Concomitant]

REACTIONS (15)
  - Abnormal behaviour [None]
  - Hypersomnia [None]
  - Depressed level of consciousness [None]
  - Urinary incontinence [None]
  - Dysstasia [None]
  - Balance disorder [None]
  - Fall [None]
  - Somnolence [None]
  - Red blood cell count decreased [None]
  - White blood cell count decreased [None]
  - Platelet count decreased [None]
  - Blood test abnormal [None]
  - Anticonvulsant drug level increased [None]
  - Cerebral atrophy [None]
  - Cognitive disorder [None]

NARRATIVE: CASE EVENT DATE: 20240903
